FAERS Safety Report 8214452-2 (Version None)
Quarter: 2012Q1

REPORT INFORMATION
  Report Type: 
  Country: None (occurrence: None)
  Receive Date: 20120316
  Receipt Date: 20120308
  Transmission Date: 20120608
  Serious: Yes (Hospitalization, Other)
  Sender: FDA-Public Use
  Company Number: US-BAYER-2012-015877

PATIENT
  Age: 29 Year
  Sex: Female
  Weight: 77.098 kg

DRUGS (4)
  1. YASMIN [Suspect]
     Indication: CONTRACEPTION
     Dosage: UNK
     Dates: start: 20070301, end: 20071201
  2. DROSPIRENONE AND ETHINYL ESTRADIOL [Suspect]
     Indication: CONTRACEPTION
     Dosage: UNK
     Dates: start: 20090601, end: 20091001
  3. YAZ [Suspect]
     Indication: CONTRACEPTION
     Dosage: UNK
     Dates: start: 20060401, end: 20060901
  4. AMBIEN [Concomitant]
     Indication: ABDOMINAL PAIN UPPER
     Dosage: 1 DAILY AT BEDTIME
     Dates: start: 20091223

REACTIONS (5)
  - CHOLECYSTITIS ACUTE [None]
  - PROCEDURAL PAIN [None]
  - DYSPEPSIA [None]
  - ABDOMINAL PAIN [None]
  - GALLBLADDER DISORDER [None]
